FAERS Safety Report 12189538 (Version 6)
Quarter: 2023Q1

REPORT INFORMATION
  Report Type: Other
  Country: CA (occurrence: None)
  Receive Date: 20160318
  Receipt Date: 20230113
  Transmission Date: 20230417
  Serious: Yes (Other)
  Sender: FDA-Public Use
  Company Number: CA-ROCHE-1692001

PATIENT
  Age: 54 Year
  Sex: Female
  Weight: 102 kg

DRUGS (19)
  1. RITUXAN [Suspect]
     Active Substance: RITUXIMAB
     Indication: Rheumatoid arthritis
     Dosage: DAY1,15
     Route: 042
     Dates: start: 20160107, end: 20160107
  2. ACTEMRA [Suspect]
     Active Substance: TOCILIZUMAB
     Indication: Rheumatoid arthritis
     Route: 042
     Dates: start: 20160329, end: 20160329
  3. ACTEMRA [Suspect]
     Active Substance: TOCILIZUMAB
     Route: 042
     Dates: start: 20160426, end: 20160426
  4. ACTEMRA [Suspect]
     Active Substance: TOCILIZUMAB
     Route: 042
     Dates: start: 20160805, end: 20160805
  5. ACTEMRA [Suspect]
     Active Substance: TOCILIZUMAB
     Route: 042
     Dates: start: 20160831, end: 20160831
  6. ACTEMRA [Suspect]
     Active Substance: TOCILIZUMAB
     Route: 042
     Dates: start: 20161026
  7. DIPHENHYDRAMINE [Concomitant]
     Active Substance: DIPHENHYDRAMINE
     Indication: Premedication
     Route: 048
     Dates: start: 20160107, end: 20160107
  8. ACETAMINOPHEN [Concomitant]
     Active Substance: ACETAMINOPHEN
     Indication: Premedication
     Route: 048
     Dates: start: 20160107, end: 20160107
  9. METHYLPREDNISOLONE [Concomitant]
     Active Substance: METHYLPREDNISOLONE
     Indication: Premedication
     Route: 042
     Dates: start: 20160107, end: 20160107
  10. TORADOL [Concomitant]
     Active Substance: KETOROLAC TROMETHAMINE
     Route: 065
  11. RANITIDINE [Concomitant]
     Active Substance: RANITIDINE
     Route: 065
  12. PREDNISONE [Concomitant]
     Active Substance: PREDNISONE
  13. RESTORIL [Concomitant]
     Active Substance: TEMAZEPAM
  14. DICLOFENAC [Concomitant]
     Active Substance: DICLOFENAC
  15. IRBESARTAN [Concomitant]
     Active Substance: IRBESARTAN
  16. TYLENOL ARTHRITIS PAIN [Concomitant]
     Active Substance: ACETAMINOPHEN
  17. NAPROXEN [Concomitant]
     Active Substance: NAPROXEN
     Route: 065
  18. CELEBREX [Concomitant]
     Active Substance: CELECOXIB
  19. SPIRONOLACTONE [Concomitant]
     Active Substance: SPIRONOLACTONE

REACTIONS (4)
  - Infusion related reaction [Unknown]
  - Weight increased [Unknown]
  - Thyroid disorder [Not Recovered/Not Resolved]
  - Pain [Not Recovered/Not Resolved]

NARRATIVE: CASE EVENT DATE: 20160107
